FAERS Safety Report 26073454 (Version 1)
Quarter: 2025Q4

REPORT INFORMATION
  Report Type: Spontaneous
  Country: US (occurrence: US)
  Receive Date: 20251121
  Receipt Date: 20251121
  Transmission Date: 20260118
  Serious: No
  Sender: ALKEM
  Company Number: US-ALKEM LABORATORIES LIMITED-US-ALKEM-2025-01313

PATIENT
  Age: 12 Year
  Sex: Female

DRUGS (46)
  1. AZITHROMYCIN [Suspect]
     Active Substance: AZITHROMYCIN
     Indication: Bartonellosis
     Dosage: 250 MILLIGRAM, BID (PULSED FOUR DAYS IN A ROW PER WEEK)
     Route: 048
  2. AZITHROMYCIN [Suspect]
     Active Substance: AZITHROMYCIN
     Indication: Babesiosis
  3. AZITHROMYCIN [Suspect]
     Active Substance: AZITHROMYCIN
     Indication: Fatigue
  4. MINOCYCLINE [Suspect]
     Active Substance: MINOCYCLINE HYDROCHLORIDE
     Indication: Bartonellosis
     Dosage: 100 MILLIGRAM, BID
     Route: 048
  5. MINOCYCLINE [Suspect]
     Active Substance: MINOCYCLINE HYDROCHLORIDE
     Indication: Tick-borne fever
  6. MINOCYCLINE [Suspect]
     Active Substance: MINOCYCLINE HYDROCHLORIDE
     Indication: Acne
  7. DIETARY SUPPLEMENT [Suspect]
     Active Substance: DIETARY SUPPLEMENT
     Indication: Babesiosis
     Dosage: UNK, TID (ONE)
     Route: 048
  8. DIETARY SUPPLEMENT [Suspect]
     Active Substance: DIETARY SUPPLEMENT
     Indication: Fatigue
     Dosage: UNK BID (ADDED WITH ONE CAPSULE)
     Route: 048
  9. ATOVAQUONE\PROGUANIL [Suspect]
     Active Substance: ATOVAQUONE\PROGUANIL
     Indication: Lyme disease
     Dosage: UNK
     Route: 065
  10. ATOVAQUONE\PROGUANIL [Suspect]
     Active Substance: ATOVAQUONE\PROGUANIL
     Indication: Bartonellosis
     Dosage: UNK, QD (WITH HIGH FAT MEAL)
     Route: 065
  11. ATOVAQUONE\PROGUANIL [Suspect]
     Active Substance: ATOVAQUONE\PROGUANIL
     Indication: Babesiosis
     Dosage: 2 GRAM BID
     Route: 048
  12. CLINDAMYCIN [Suspect]
     Active Substance: CLINDAMYCIN
     Indication: Babesiosis
     Dosage: 300 MILLIGRAM, BID
     Route: 048
  13. CLINDAMYCIN [Suspect]
     Active Substance: CLINDAMYCIN
     Indication: Fatigue
     Dosage: 900 MILLIGRAM, QD
     Route: 065
  14. HERBALS [Suspect]
     Active Substance: HERBALS
     Indication: Babesiosis
     Dosage: UNK BID (30DROPS)
     Route: 065
  15. HERBALS [Suspect]
     Active Substance: HERBALS
     Indication: Fatigue
  16. PLAQUENIL [Suspect]
     Active Substance: HYDROXYCHLOROQUINE SULFATE
     Indication: Babesiosis
     Dosage: 200 MILLIGRAM, QD
     Route: 048
  17. PLAQUENIL [Suspect]
     Active Substance: HYDROXYCHLOROQUINE SULFATE
     Dosage: 200 MILLIGRAM, BID
     Route: 048
  18. RIFAMPIN [Suspect]
     Active Substance: RIFAMPIN
     Indication: Lyme disease
     Dosage: UNK
     Route: 065
  19. RIFAMPIN [Suspect]
     Active Substance: RIFAMPIN
     Indication: Bartonellosis
     Dosage: 150 MILLIGRAMS (TWO CAPSULES IN THE MORNING AND ONE IN THE EVENING BASED ON BODY WEIGHT)
     Route: 065
  20. RIFAMPIN [Suspect]
     Active Substance: RIFAMPIN
     Indication: Babesiosis
     Dosage: 300 MILLIGRAM, BID
     Route: 048
  21. ALPHA LIPOIC ACID [Concomitant]
     Active Substance: .ALPHA.-LIPOIC ACID
     Indication: Jarisch-Herxheimer reaction
     Dosage: 600 MILLIGRAM, QD
     Route: 065
  22. CLARITHROMYCIN [Concomitant]
     Active Substance: CLARITHROMYCIN
     Indication: Lyme disease
     Dosage: 500 MILLIGRAM, BID
     Route: 048
  23. CEFDINIR [Concomitant]
     Active Substance: CEFDINIR
     Indication: Lyme disease
     Dosage: 300 MILLIGRAM, BID
     Route: 065
  24. DAPSONE [Concomitant]
     Active Substance: DAPSONE
     Indication: Jarisch-Herxheimer reaction
     Dosage: 25 MILLIGRAM, QOD
     Route: 065
  25. DAPSONE [Concomitant]
     Active Substance: DAPSONE
     Dosage: 25 MILLIGRAM, QD
     Route: 065
  26. DAPSONE [Concomitant]
     Active Substance: DAPSONE
     Dosage: 25 MILLIGRAM, QD
     Route: 065
  27. DAPSONE [Concomitant]
     Active Substance: DAPSONE
     Dosage: 50 MILLIGRAM, QD
     Route: 065
  28. DOXYCYCLINE [Concomitant]
     Active Substance: DOXYCYCLINE
     Indication: Lyme disease
     Dosage: UNK
     Route: 065
  29. DOXYCYCLINE [Concomitant]
     Active Substance: DOXYCYCLINE
     Indication: Bartonellosis
     Dosage: 100 MILLIGRAM, BID
     Route: 048
  30. DOXYCYCLINE [Concomitant]
     Active Substance: DOXYCYCLINE
     Indication: Babesiosis
  31. GABA-L-theanine [Concomitant]
     Indication: Insomnia
     Dosage: UNK
     Route: 065
  32. GLUTATHIONE [Concomitant]
     Active Substance: GLUTATHIONE
     Indication: Jarisch-Herxheimer reaction
     Dosage: 500 MILLIGRAM, QD
     Route: 065
  33. GLUTATHIONE [Concomitant]
     Active Substance: GLUTATHIONE
     Dosage: 2000 MILLIGRAM, ONCE
     Route: 065
  34. GLUTATHIONE [Concomitant]
     Active Substance: GLUTATHIONE
     Dosage: 500 MILLIGRAM, BID
     Route: 048
  35. GLUTATHIONE [Concomitant]
     Active Substance: GLUTATHIONE
     Dosage: 2 GRAM
     Route: 042
  36. LEUCOVORIN [Concomitant]
     Active Substance: LEUCOVORIN\LEUCOVORIN CALCIUM
     Indication: Fatigue
     Dosage: 25 MILLIGRAM, QD
     Route: 065
  37. ACETYLCYSTEINE [Concomitant]
     Active Substance: ACETYLCYSTEINE
     Indication: Jarisch-Herxheimer reaction
     Dosage: 600 MILLIGRAM, BID
     Route: 065
  38. MIDODRINE [Concomitant]
     Active Substance: MIDODRINE
     Indication: Postural orthostatic tachycardia syndrome
     Dosage: 2.5 MILLIGRAM, TID
     Route: 065
  39. MIDODRINE [Concomitant]
     Active Substance: MIDODRINE
     Dosage: 7.5 MILLIGRAM, TID
     Route: 048
  40. METOPROLOL [Concomitant]
     Active Substance: METOPROLOL
     Indication: Tachycardia
     Dosage: 25 MILLIGRAM, QD
     Route: 065
  41. LECITHIN [Concomitant]
     Active Substance: LECITHIN
     Indication: Postural orthostatic tachycardia syndrome
     Dosage: 3 GRAM, BID
     Route: 065
  42. RIFABUTIN [Concomitant]
     Active Substance: RIFABUTIN
     Indication: Jarisch-Herxheimer reaction
     Dosage: 150 MILLIGRAM, BID
     Route: 048
  43. SODIUM BICARBONATE [Concomitant]
     Active Substance: SODIUM BICARBONATE
     Indication: Jarisch-Herxheimer reaction
     Dosage: 2 GRAM, PRN
     Route: 065
  44. SULFAMETHOXAZOLE\TRIMETHOPRIM [Concomitant]
     Active Substance: SULFAMETHOXAZOLE\TRIMETHOPRIM
     Indication: Lyme disease
     Dosage: UNK
     Route: 065
  45. Sulforaphane glucosinolate [Concomitant]
     Indication: Jarisch-Herxheimer reaction
     Dosage: 100 MILLIGRAM, QD
     Route: 065
  46. HERBALS\TURMERIC [Concomitant]
     Active Substance: HERBALS\TURMERIC
     Indication: Jarisch-Herxheimer reaction
     Dosage: 500 MILLIGRAM, BID
     Route: 065

REACTIONS (2)
  - Diarrhoea [Unknown]
  - Abdominal discomfort [Unknown]
